FAERS Safety Report 8087645 (Version 3)
Quarter: 2012Q4

REPORT INFORMATION
  Report Type: Spontaneous
  Country: US (occurrence: None)
  Receive Date: 20110804
  Receipt Date: 20120904
  Transmission Date: 20130627
  Serious: Yes (Disabling, Other)
  Sender: FDA-Public Use
  Company Number: 2011MA009260

PATIENT
  Sex: Female
  Weight: 72.12 kg

DRUGS (15)
  1. METOCLOPRAMIDE [Suspect]
     Indication: HIATAL HERNIA
     Dosage: PRN
     Route: 048
     Dates: start: 20060927, end: 20081020
  2. METOCLOPRAMIDE [Suspect]
     Indication: GERD
     Dosage: PRN
     Route: 048
     Dates: start: 20060927, end: 20081020
  3. LIDODERM [Concomitant]
  4. OMEPRAZOLE [Concomitant]
  5. EXCEDRIN [Concomitant]
  6. BONIVA [Concomitant]
  7. CALTRATE WITH VITAMIN D [Concomitant]
  8. LEXAPRO [Concomitant]
  9. LYRICA [Concomitant]
  10. ZYPREXA [Concomitant]
  11. CYCLIC ANTIDEPRESSANTS [Concomitant]
  12. AMBIEN [Concomitant]
  13. SLEEP MEDICATIONS [Concomitant]
  14. TRAMADOL [Concomitant]
  15. LIDODERM PATCH [Concomitant]

REACTIONS (22)
  - Tardive dyskinesia [None]
  - Extrapyramidal disorder [None]
  - Economic problem [None]
  - Family stress [None]
  - Emotional distress [None]
  - Myalgia [None]
  - Fatigue [None]
  - Insomnia [None]
  - Hyperreflexia [None]
  - Cervicobrachial syndrome [None]
  - Cold sweat [None]
  - Muscular weakness [None]
  - Muscular weakness [None]
  - Tremor [None]
  - Motor dysfunction [None]
  - Muscular weakness [None]
  - Parkinson^s disease [None]
  - Hyporeflexia [None]
  - Chills [None]
  - Influenza [None]
  - Fibromyalgia [None]
  - Coordination abnormal [None]
